FAERS Safety Report 19488087 (Version 3)
Quarter: 2021Q3

REPORT INFORMATION
  Report Type: Report from Study
  Country: FR (occurrence: FR)
  Receive Date: 20210702
  Receipt Date: 20210816
  Transmission Date: 20211014
  Serious: Yes (Death, Other)
  Sender: FDA-Public Use
  Company Number: FR-AMGEN-FRANI2021102013

PATIENT
  Age: 49 Year
  Sex: Female

DRUGS (24)
  1. AMG 510 [Suspect]
     Active Substance: AMG-510
     Indication: NON-SMALL CELL LUNG CANCER
     Dosage: 960 MILLIGRAM, QD, 8 TABLETS
     Route: 065
     Dates: start: 20210429, end: 20210430
  2. METOCLOPRAMIDE [METOCLOPRAMIDE HYDROCHLORIDE] [Concomitant]
     Active Substance: METOCLOPRAMIDE HYDROCHLORIDE
     Dosage: 10 MILLIGRAM/2 ML, IF NEEDED, FOR 29 DAYS
     Route: 042
     Dates: start: 20210407, end: 20210506
  3. LOPERAMIDE [Concomitant]
     Active Substance: LOPERAMIDE
     Dosage: 2 MILLIGRAM, IF NEEDED, FOR 24 DAYS
     Route: 048
     Dates: start: 20210412, end: 20210506
  4. OLIMEL E [Concomitant]
     Active Substance: AMINO ACIDS\DEXTROSE\ELECTROLYTES NOS\SOYBEAN OIL
     Dosage: EMULSION FOR INFUSION, BAG, 3 X CHAMBERS, 1 L, EVERY DAY FOR 28 DAYS
     Route: 042
     Dates: start: 20210407, end: 20210505
  5. MORPHINE CHLORHYDRATE AGUETTANT [Concomitant]
     Active Substance: MORPHINE HYDROCHLORIDE
     Dosage: 100 MG/1 ML,EVERY DAY FOR 25 DAYS.
     Route: 042
     Dates: start: 20210410, end: 20210505
  6. POTASSIUM CHLORIDE. [Concomitant]
     Active Substance: POTASSIUM CHLORIDE
     Dosage: 1 GRAM/10 ML, CONC. FOR SOL. FOR INF., AMP. MINI?PLAS, EVERY DAY FOR 9 DAYS
     Route: 042
     Dates: start: 20210428, end: 20210506
  7. PHLOROGLUCINOL/TRIMETHYLPHLOROGLUCINOL ARROW [Concomitant]
     Active Substance: PHLOROGLUCINOL\1,3,5-TRIMETHOXYBENZENE
     Dosage: 40 MILLIGRAM/ 0.04 MG/4 ML,EVERY DAY FOR THE DURATION OF THE PRESCRIPTION
     Dates: start: 20210407, end: 20210508
  8. MIDAZOLAM. [Concomitant]
     Active Substance: MIDAZOLAM
     Dosage: 50 MG/10 ML SOL. FOR INJ. AMP., EVERY DAY FOR 6 DAYS
     Route: 042
     Dates: start: 20210428, end: 20210504
  9. NUTRYELT [Concomitant]
     Active Substance: IRON\MINERALS\POTASSIUM IOD\SODIUM FLUORIDE\SODIUM MOLYBDATE\SODIUM SELENITE\ZINC
     Dosage: CONC. FOR SOL. FOR INF., AMP. 10 ML, EVERY DAY FOR THE DURATION OF THE PRESCRIPTION
     Route: 042
     Dates: start: 20210407, end: 20210508
  10. KETAMINE HYDROCHLORIDE;KETOPROFEN;LIDOCAINE HYDROCHLORIDE [Concomitant]
     Dosage: 50 MG/5 MG,SOL. FOR INJ., AMP.EVERY DAY FOR THE DURATION OF THE PRESCRIPTION
     Route: 042
     Dates: start: 20210418, end: 20210508
  11. MORPHINE CHLORHYDRATE AGUETTANT [Concomitant]
     Active Substance: MORPHINE HYDROCHLORIDE
     Dosage: 10 MG/1 ML,EVERY DAY FOR 4 DAYS
     Route: 042
     Dates: start: 20210501, end: 20210505
  12. NEFOPAM [Concomitant]
     Active Substance: NEFOPAM
     Dosage: 20 MG/2 ML SOL. FOR INJ, AMP,EVERY DAY FOR THE DURATION OF THE PRESCRIPTION
     Route: 042
     Dates: start: 20210417, end: 20210508
  13. INNOHEP [Concomitant]
     Active Substance: TINZAPARIN SODIUM
     Dosage: 10,000 ANTI?XA IU/0.5 ML SOLUTION FOR INJECTION , SYRINGE, EVERY DAY FOR 29 DAYS
     Route: 058
     Dates: start: 20210407, end: 20210506
  14. GLUCIDION G [Concomitant]
     Active Substance: DEXTROSE\POTASSIUM CHLORIDE\SODIUM CHLORIDE
     Dosage: G5, SOL. FOR INF., BAG, 500 ML ECOFLAC, EVERY DAY FOR 22 DAYS
     Route: 042
     Dates: start: 20210412, end: 20210504
  15. SODIUM CHLORIDE. [Concomitant]
     Active Substance: SODIUM CHLORIDE
     Dosage: 2 GRAM/10 ML, CONC. FOR SOL. FOR INF., AMP. PROAMP,EVERY DAY FOR 20 DAYS
     Route: 042
     Dates: start: 20210416, end: 20210505
  16. NEORECORMON [Concomitant]
     Active Substance: ERYTHROPOIETIN
     Dosage: 30,000 IU/0.6 ML,SOLUTION FOR INJECTION SYRINGE, 1 DAY IN 7: FRIDAY, FOR 20 DAYS
     Route: 058
     Dates: start: 20210416, end: 20210506
  17. CERNEVIT [Concomitant]
     Active Substance: VITAMINS
     Dosage: PDR. FOR SOL. FOR INJ.EVERY DAY FOR THE DURATION OF THE PRESCRIPTION
     Route: 042
     Dates: start: 20210407, end: 20210508
  18. MIDAZOLAM. [Concomitant]
     Active Substance: MIDAZOLAM
     Dosage: 50 MG/10 ML SOL. FOR INJ. AMP., IF NEEDED, FOR 7 DAYS
     Route: 042
     Dates: start: 20210428, end: 20210505
  19. SMECTA [Concomitant]
     Active Substance: MONTMORILLONITE
     Dosage: 3 GRAM, IF NEEDED, FOR 12 DAYS
     Route: 048
     Dates: start: 20210422, end: 20210504
  20. VERSATIS [Concomitant]
     Active Substance: LIDOCAINE
     Dosage: 5 PERCENT,CUTANEOUS USE.EVERY DAY FOR 31 DAYS
     Dates: start: 20210407, end: 20210508
  21. MIDAZOLAM. [Concomitant]
     Active Substance: MIDAZOLAM
     Dosage: 5  MG/ 5  ML SOL. FOR INJ. AMP., IF NEEDED, FOR 11 DAYS
     Route: 042
     Dates: start: 20210424, end: 20210505
  22. MORPHINE CHLORHYDRATE AGUETTANT [Concomitant]
     Active Substance: MORPHINE HYDROCHLORIDE
     Dosage: 10 MG/1 ML,EVERY DAY FOR 2 DAYS
     Route: 042
     Dates: start: 20210429, end: 20210501
  23. PARACETAMOL [Concomitant]
     Active Substance: ACETAMINOPHEN
     Dosage: EVERY DAY FOR THE DURATION OF THE PRESCRIPTION, 1,000 MG/100 ML
     Route: 042
     Dates: start: 20210412, end: 20210508
  24. LAROXYL [Concomitant]
     Active Substance: AMITRIPTYLINE HYDROCHLORIDE
     Dosage: 40 MG/ML, EVERY DAY FOR 15 DAYS
     Route: 048
     Dates: start: 20210422, end: 20210506

REACTIONS (1)
  - Non-small cell lung cancer [Fatal]

NARRATIVE: CASE EVENT DATE: 20210805
